FAERS Safety Report 11835732 (Version 2)
Quarter: 2025Q1

REPORT INFORMATION
  Report Type: Spontaneous
  Country: US (occurrence: US)
  Receive Date: 20151215
  Receipt Date: 20250223
  Transmission Date: 20250409
  Serious: Yes (Hospitalization, Other)
  Sender: LUPIN
  Company Number: US-LUPIN PHARMACEUTICALS INC.-2015-04081

PATIENT
  Age: 58 Year
  Sex: Female

DRUGS (4)
  1. LOVASTATIN [Suspect]
     Active Substance: LOVASTATIN
     Indication: Product used for unknown indication
     Route: 065
  2. LEFLUNOMIDE [Suspect]
     Active Substance: LEFLUNOMIDE
     Indication: Product used for unknown indication
     Route: 065
  3. TRAMADOL [Suspect]
     Active Substance: TRAMADOL
     Indication: Product used for unknown indication
     Route: 065
  4. PANTOPRAZOLE [Suspect]
     Active Substance: PANTOPRAZOLE
     Indication: Product used for unknown indication
     Route: 065

REACTIONS (2)
  - Acute hepatic failure [Recovered/Resolved]
  - Hepatic encephalopathy [Recovered/Resolved]
